FAERS Safety Report 16330245 (Version 1)
Quarter: 2019Q2

REPORT INFORMATION
  Report Type: Spontaneous
  Country: US (occurrence: US)
  Receive Date: 20190520
  Receipt Date: 20190520
  Transmission Date: 20190711
  Serious: Yes (Hospitalization)
  Sender: FDA-Public Use
  Company Number: US-GW PHARMA-201905USGW1444

PATIENT

DRUGS (4)
  1. ONFI [Interacting]
     Active Substance: CLOBAZAM
     Indication: PRODUCT USED FOR UNKNOWN INDICATION
     Dosage: UNK
     Route: 065
     Dates: end: 2019
  2. EPIDIOLEX [Suspect]
     Active Substance: CANNABIDIOL
     Indication: LENNOX-GASTAUT SYNDROME
     Dosage: 280 MILLIGRAM, BID
     Route: 048
     Dates: start: 201904, end: 2019
  3. EPIDIOLEX [Interacting]
     Active Substance: CANNABIDIOL
     Dosage: UNK
     Route: 048
     Dates: start: 2019
  4. ONFI [Interacting]
     Active Substance: CLOBAZAM
     Dosage: UNK
     Route: 065
     Dates: start: 2019

REACTIONS (3)
  - Coma [Unknown]
  - Respiratory rate decreased [Unknown]
  - Drug interaction [Unknown]
